FAERS Safety Report 19008753 (Version 1)
Quarter: 2021Q1

REPORT INFORMATION
  Report Type: Spontaneous
  Country: CA (occurrence: CA)
  Receive Date: 20210315
  Receipt Date: 20210315
  Transmission Date: 20210420
  Serious: Yes (Death, Life-Threatening, Hospitalization)
  Sender: FDA-Public Use
  Company Number: CA-009507513-2103CAN002454

PATIENT
  Age: 50 Year
  Sex: Female

DRUGS (1)
  1. KEYTRUDA [Suspect]
     Active Substance: PEMBROLIZUMAB
     Indication: LUNG NEOPLASM MALIGNANT
     Dosage: DOSAGE FORM NOT SPECIFIED

REACTIONS (3)
  - Hepatitis [Fatal]
  - Nephritis [Fatal]
  - Immune-mediated pneumonitis [Fatal]
